FAERS Safety Report 5096223-1 (Version None)
Quarter: 2006Q3

REPORT INFORMATION
  Report Type: 
  Country: None (occurrence: None)
  Receive Date: 20060831
  Receipt Date: 20060818
  Transmission Date: 20061208
  Serious: Yes (Other)
  Sender: FDA-Public Use
  Company Number: 228915

PATIENT
  Age: 52 Year
  Sex: Female

DRUGS (8)
  1. XOLAIR [Suspect]
     Indication: ASTHMA
     Dates: start: 20060816
  2. PREDNISONE TAB [Concomitant]
  3. PROTONIX [Concomitant]
  4. ALLEGRA [Concomitant]
  5. BENADRYL [Concomitant]
  6. SINGULAIR [Concomitant]
  7. DIFLUCAN [Concomitant]
  8. TUMS (CALCIUM CARBONATE) [Concomitant]

REACTIONS (9)
  - ANOREXIA [None]
  - DRUG EFFECT DECREASED [None]
  - DYSPNOEA [None]
  - HEADACHE [None]
  - HEART RATE INCREASED [None]
  - INJECTION SITE REACTION [None]
  - MUSCLE TWITCHING [None]
  - MUSCULOSKELETAL STIFFNESS [None]
  - SWOLLEN TONGUE [None]
